FAERS Safety Report 8837495 (Version 1)
Quarter: 2012Q4

REPORT INFORMATION
  Report Type: Report from Study
  Country: US (occurrence: US)
  Receive Date: 20121012
  Receipt Date: 20121012
  Transmission Date: 20130627
  Serious: Yes (Hospitalization)
  Sender: FDA-Public Use
  Company Number: US-ELI_LILLY_AND_COMPANY-US201210002550

PATIENT
  Sex: Male
  Weight: 93.88 kg

DRUGS (1)
  1. PRASUGREL HYDROCHLORIDE [Suspect]
     Dosage: UNK
     Dates: start: 20120414

REACTIONS (4)
  - Haemorrhage [Unknown]
  - Haemoglobin decreased [Unknown]
  - Colonoscopy [Unknown]
  - Large intestine polyp [Unknown]
